FAERS Safety Report 26094115 (Version 1)
Quarter: 2025Q4

REPORT INFORMATION
  Report Type: Spontaneous
  Country: JP (occurrence: JP)
  Receive Date: 20251126
  Receipt Date: 20251126
  Transmission Date: 20260118
  Serious: Yes (Death, Other)
  Sender: AMGEN
  Company Number: JP-AMGEN-JPNSP2025231117

PATIENT

DRUGS (5)
  1. BEVACIZUMAB [Suspect]
     Active Substance: BEVACIZUMAB
     Indication: Rectal cancer
     Dosage: UNK
     Route: 065
  2. OXALIPLATIN [Concomitant]
     Active Substance: OXALIPLATIN
     Indication: Rectal cancer
  3. LEUCOVORIN [Concomitant]
     Active Substance: LEUCOVORIN\LEUCOVORIN CALCIUM
     Indication: Rectal cancer
  4. FLUOROURACIL [Concomitant]
     Active Substance: FLUOROURACIL
     Indication: Rectal cancer
  5. IRINOTECAN [Concomitant]
     Active Substance: IRINOTECAN
     Indication: Rectal cancer

REACTIONS (13)
  - Death [Fatal]
  - Colorectal cancer [Fatal]
  - Neutropenia [Unknown]
  - Deep vein thrombosis [Unknown]
  - Anastomotic leak [Unknown]
  - Rectal cancer [Unknown]
  - Metastases to lung [Unknown]
  - Therapy partial responder [Unknown]
  - Toxicity to various agents [Unknown]
  - TP53 gene mutation [Unknown]
  - K-ras gene mutation [Unknown]
  - Adverse event [Unknown]
  - Postoperative wound infection [Unknown]
